FAERS Safety Report 6775054-8 (Version None)
Quarter: 2010Q2

REPORT INFORMATION
  Report Type: 
  Country: None (occurrence: None)
  Receive Date: 20100617
  Receipt Date: 20100610
  Transmission Date: 20101027
  Serious: Yes (Death, Hospitalization)
  Sender: FDA-Public Use
  Company Number: A0865589A

PATIENT
  Age: 82 Year
  Sex: Male

DRUGS (3)
  1. MELPHALAN HYDROCHLORIDE [Suspect]
     Indication: MULTIPLE MYELOMA
     Dosage: 18MG PER DAY
     Dates: start: 20070711, end: 20070714
  2. THALIDOMIDE [Suspect]
     Indication: MULTIPLE MYELOMA
     Dates: start: 20070711, end: 20070728
  3. PREDNISONE [Concomitant]
     Dosage: 100MG PER DAY
     Dates: start: 20070711, end: 20070714

REACTIONS (2)
  - PANCYTOPENIA [None]
  - PNEUMONIA ASPIRATION [None]
